FAERS Safety Report 19050636 (Version 1)
Quarter: 2021Q1

REPORT INFORMATION
  Report Type: Spontaneous
  Country: US (occurrence: US)
  Receive Date: 20210323
  Receipt Date: 20210323
  Transmission Date: 20210420
  Serious: No
  Sender: FDA-Public Use
  Company Number: US-TEVA-2021-US-1885625

PATIENT
  Age: 71 Year
  Sex: Female

DRUGS (7)
  1. DILTIAZEM HCL ER COATED BEADS CAPSULE EXTENDED RELEASE 24 HOUR 120 MG [Concomitant]
     Route: 048
  2. ABILIFY MAINTENA PREFILLED SYRINGE 400 MG [Concomitant]
     Route: 030
  3. SPIRONOLACTONE TABLET 25 MG [Concomitant]
     Route: 048
  4. AUSTEDO [Suspect]
     Active Substance: DEUTETRABENAZINE
     Route: 048
  5. GABAPENTIN CAPSULE 300 MG [Concomitant]
     Route: 048
  6. CARVEDILOL TABLET 25 MG [Concomitant]
     Route: 048
  7. LISINOPRIL HYDROCHLOROTHIAZIDE TABLET 20/12.5 MG [Concomitant]
     Route: 048

REACTIONS (1)
  - Drooling [Unknown]
